FAERS Safety Report 25646098 (Version 1)
Quarter: 2025Q3

REPORT INFORMATION
  Report Type: Spontaneous
  Country: US (occurrence: None)
  Receive Date: 20250805
  Receipt Date: 20250805
  Transmission Date: 20251020
  Serious: No
  Sender: FDA-CTU
  Company Number: None

PATIENT

DRUGS (1)
  1. ZEPBOUND [Suspect]
     Active Substance: TIRZEPATIDE

REACTIONS (11)
  - Rash [None]
  - Seborrhoeic dermatitis [None]
  - Nerve injury [None]
  - Gait disturbance [None]
  - Brain fog [None]
  - Fatigue [None]
  - Asthenia [None]
  - Pain [None]
  - Hypertension [None]
  - Toothache [None]
  - Pain in jaw [None]
